FAERS Safety Report 6478396-9 (Version None)
Quarter: 2009Q4

REPORT INFORMATION
  Report Type: 
  Country: None (occurrence: None)
  Receive Date: 20091207
  Receipt Date: 20091125
  Transmission Date: 20100525
  Serious: Yes (Other)
  Sender: FDA-Public Use
  Company Number: PHHY2009TR52991

PATIENT
  Sex: Female
  Weight: 1.47 kg

DRUGS (3)
  1. CYCLOSPORINE [Suspect]
     Indication: GLOMERULONEPHRITIS MEMBRANOPROLIFERATIVE
     Dosage: MATERNAL DOSE: 100 MG/DAY
     Route: 064
  2. PREDNISOLONE [Concomitant]
     Route: 064
  3. ENALAPRIL [Concomitant]
     Route: 064

REACTIONS (4)
  - DRUG EXPOSURE DURING PREGNANCY [None]
  - FOETAL GROWTH RETARDATION [None]
  - PREMATURE BABY [None]
  - SMALL FOR DATES BABY [None]
